FAERS Safety Report 10354219 (Version 2)
Quarter: 2014Q3

REPORT INFORMATION
  Report Type: Spontaneous
  Country: US (occurrence: US)
  Receive Date: 20140731
  Receipt Date: 20140922
  Transmission Date: 20150326
  Serious: Yes (Death, Hospitalization, Other)
  Sender: FDA-Public Use
  Company Number: US-SA-2014SA099898

PATIENT
  Age: 56 Year
  Sex: Male

DRUGS (1)
  1. FABRAZYME [Suspect]
     Active Substance: AGALSIDASE BETA
     Indication: FABRY^S DISEASE
     Route: 042
     Dates: start: 201102, end: 2014

REACTIONS (4)
  - Hospitalisation [Unknown]
  - Death [Fatal]
  - Cerebrovascular accident [Unknown]
  - Feeling of despair [Unknown]

NARRATIVE: CASE EVENT DATE: 20140722
